FAERS Safety Report 14530983 (Version 1)
Quarter: 2018Q1

REPORT INFORMATION
  Report Type: Spontaneous
  Country: US (occurrence: US)
  Receive Date: 20180213
  Receipt Date: 20180213
  Transmission Date: 20180509
  Serious: Yes (Disabling, Other)
  Sender: FDA-Public Use
  Company Number: None

PATIENT
  Age: 87 Year
  Sex: Female
  Weight: 54 kg

DRUGS (17)
  1. GABAPENTIN. [Concomitant]
     Active Substance: GABAPENTIN
  2. PROBIOTIC [Concomitant]
     Active Substance: PROBIOTICS NOS
  3. SYSTANE (HYPROMELLOSE 2910 (4000 MPA.S)) [Concomitant]
     Active Substance: HYPROMELLOSE 2910 (4000 MPA.S)
  4. AMLODIPINE [Concomitant]
     Active Substance: AMLODIPINE BESYLATE
  5. LOVASTATIN. [Concomitant]
     Active Substance: LOVASTATIN
  6. DORZOLAMIDE [Concomitant]
     Active Substance: DORZOLAMIDE
  7. IVIG [Concomitant]
     Active Substance: HUMAN IMMUNOGLOBULIN G
  8. POTASSIUM CHLORIDE. [Concomitant]
     Active Substance: POTASSIUM CHLORIDE
  9. TUMERIC [Concomitant]
     Active Substance: HERBALS\TURMERIC
  10. LOSARTAN. [Concomitant]
     Active Substance: LOSARTAN
  11. BACLOFEN. [Concomitant]
     Active Substance: BACLOFEN
  12. CALTRATE+D [Concomitant]
  13. PROLIA [Suspect]
     Active Substance: DENOSUMAB
     Indication: BONE DISORDER
     Dosage: ?          QUANTITY:1 INJECTION(S);OTHER FREQUENCY:ONCE;?
     Route: 030
     Dates: start: 20170307, end: 20170307
  14. CLOPIDOGREL [Concomitant]
     Active Substance: CLOPIDOGREL BISULFATE
  15. PREDNISONE. [Concomitant]
     Active Substance: PREDNISONE
  16. LANSOPRAZOLE. [Concomitant]
     Active Substance: LANSOPRAZOLE
  17. MIRALAX [Concomitant]
     Active Substance: POLYETHYLENE GLYCOL 3350

REACTIONS (1)
  - Dysphagia [None]

NARRATIVE: CASE EVENT DATE: 20170320
